FAERS Safety Report 15739057 (Version 1)
Quarter: 2018Q4

REPORT INFORMATION
  Report Type: Spontaneous
  Country: US (occurrence: US)
  Receive Date: 20181219
  Receipt Date: 20181219
  Transmission Date: 20190205
  Serious: No
  Sender: FDA-Public Use
  Company Number: US-HTU-2018US017712

PATIENT
  Sex: Male

DRUGS (2)
  1. VALCHLOR [Suspect]
     Active Substance: MECHLORETHAMINE
     Indication: MYCOSIS FUNGOIDES
     Dosage: THIN FILM ONCE DAILY
     Route: 061
     Dates: start: 20180912
  2. VALCHLOR [Suspect]
     Active Substance: MECHLORETHAMINE
     Dosage: UNK, UNKNOWN
     Route: 061

REACTIONS (4)
  - Skin ulcer [Recovered/Resolved]
  - Underdose [Unknown]
  - Accidental overdose [Recovered/Resolved]
  - Inappropriate schedule of product administration [Unknown]
